FAERS Safety Report 21108609 (Version 1)
Quarter: 2022Q3

REPORT INFORMATION
  Report Type: Spontaneous
  Country: US (occurrence: US)
  Receive Date: 20220721
  Receipt Date: 20220721
  Transmission Date: 20221026
  Serious: No
  Sender: FDA-Public Use
  Company Number: None

PATIENT
  Age: 93 Year
  Sex: Male
  Weight: 107 kg

DRUGS (1)
  1. BENZONATATE [Suspect]
     Active Substance: BENZONATATE
     Indication: Cough
     Route: 048
     Dates: start: 20220627, end: 20220627

REACTIONS (3)
  - Pharyngeal swelling [Unknown]
  - Dysphagia [Unknown]
  - Product use complaint [Unknown]

NARRATIVE: CASE EVENT DATE: 20220627
